FAERS Safety Report 5216613-3 (Version None)
Quarter: 2007Q1

REPORT INFORMATION
  Report Type: 
  Country: None (occurrence: None)
  Receive Date: 20061130
  Receipt Date: 20060807
  Transmission Date: 20070707
  Serious: Yes (Other)
  Sender: FDA-Public Use
  Company Number: US200608002298

PATIENT
  Sex: Female
  Weight: 76.2 kg

DRUGS (2)
  1. ZYPREXA [Suspect]
  2. LIPITOR [Concomitant]

REACTIONS (5)
  - BLOOD TRIGLYCERIDES INCREASED [None]
  - DIABETES MELLITUS [None]
  - DRUG INTERACTION [None]
  - METABOLIC DISORDER [None]
  - PANCREATITIS [None]
